FAERS Safety Report 4302998-9 (Version None)
Quarter: 2004Q1

REPORT INFORMATION
  Report Type: 
  Country: None (occurrence: None)
  Receive Date: 20040224
  Receipt Date: 20040202
  Transmission Date: 20041129
  Serious: Yes (Hospitalization)
  Sender: FDA-Public Use
  Company Number: ZW-GLAXOSMITHKLINE-B0321728A

PATIENT
  Age: 34 Year
  Sex: Female

DRUGS (1)
  1. TRIZIVIR [Suspect]
     Indication: HIV INFECTION
     Dosage: 1TAB TWICE PER DAY
     Route: 048
     Dates: start: 20031120

REACTIONS (9)
  - CRYPTOCOCCOSIS [None]
  - DEAFNESS [None]
  - HEADACHE [None]
  - IMMUNE RECONSTITUTION SYNDROME [None]
  - MENINGITIS CRYPTOCOCCAL [None]
  - MUSCULOSKELETAL STIFFNESS [None]
  - NECK PAIN [None]
  - PYREXIA [None]
  - VOMITING [None]
